FAERS Safety Report 4730474-8 (Version None)
Quarter: 2005Q3

REPORT INFORMATION
  Report Type: 
  Country: None (occurrence: None)
  Receive Date: 20050801
  Receipt Date: 20050602
  Transmission Date: 20060218
  Serious: Yes (Hospitalization)
  Sender: FDA-Public Use
  Company Number: US-BRISTOL-MYERS SQUIBB COMPANY-12993234

PATIENT
  Age: 73 Year
  Sex: Female

DRUGS (15)
  1. TEQUIN [Suspect]
     Indication: LOBAR PNEUMONIA
     Route: 048
     Dates: start: 20050216, end: 20050225
  2. WARFARIN SODIUM [Interacting]
     Indication: ATRIAL FIBRILLATION
     Dosage: 2 MG SUNDAY AND THURSDAY, 1 MG OTHER DAYS.
     Route: 048
  3. VALSARTAN [Concomitant]
  4. FUROSEMIDE [Concomitant]
  5. PIOGLITAZONE HCL [Concomitant]
  6. INSULIN GLARGINE [Concomitant]
  7. ROSUVASTATIN CALCIUM [Concomitant]
  8. EZETIMIBE [Concomitant]
  9. LEVOXYL [Concomitant]
  10. PREMARIN [Concomitant]
  11. OMEPRAZOLE [Concomitant]
  12. ALLOPURINOL [Concomitant]
  13. AMITRIPTYLINE HCL [Concomitant]
  14. DOCUSATE SODIUM [Concomitant]
  15. QUININE SULFATE [Concomitant]

REACTIONS (2)
  - DRUG INTERACTION [None]
  - INTERNATIONAL NORMALISED RATIO INCREASED [None]
